FAERS Safety Report 20875557 (Version 1)
Quarter: 2022Q2

REPORT INFORMATION
  Report Type: Spontaneous
  Country: RU (occurrence: None)
  Receive Date: 20220526
  Receipt Date: 20220526
  Transmission Date: 20220721
  Serious: Yes (Other)
  Sender: FDA-Public Use
  Company Number: RU-ROCHE-3100152

PATIENT

DRUGS (1)
  1. ATEZOLIZUMAB [Suspect]
     Active Substance: ATEZOLIZUMAB
     Indication: Product used for unknown indication
     Dosage: MONOTHERAPY (8 CYCLES),
     Route: 065

REACTIONS (3)
  - Immune-mediated hypophysitis [Unknown]
  - Seizure [Unknown]
  - Loss of consciousness [Unknown]
